FAERS Safety Report 6515460-X (Version None)
Quarter: 2009Q4

REPORT INFORMATION
  Report Type: 
  Country: None (occurrence: None)
  Receive Date: 20091223
  Receipt Date: 20091216
  Transmission Date: 20100525
  Serious: Yes (Congenital Anomaly)
  Sender: FDA-Public Use
  Company Number: FR-BRISTOL-MYERS SQUIBB COMPANY-14901060

PATIENT
  Sex: Female
  Weight: 2 kg

DRUGS (7)
  1. ABILIFY [Suspect]
     Route: 064
  2. SEROPLEX [Suspect]
     Dosage: FORM: TABS.
     Route: 064
     Dates: start: 20090101, end: 20090501
  3. DIPIPERON [Suspect]
     Route: 064
  4. DIHYDROERGOTAMINE MESYLATE [Suspect]
     Route: 064
  5. SERESTA [Suspect]
     Route: 064
  6. HAVLANE [Suspect]
     Route: 064
  7. TRANXENE [Suspect]
     Route: 064

REACTIONS (2)
  - FALLOT'S TETRALOGY [None]
  - PREMATURE BABY [None]
